FAERS Safety Report 8146904-8 (Version None)
Quarter: 2012Q1

REPORT INFORMATION
  Report Type: 
  Country: None (occurrence: None)
  Receive Date: 20120217
  Receipt Date: 20120207
  Transmission Date: 20120608
  Serious: Yes (Other)
  Sender: FDA-Public Use
  Company Number: US-ABBOTT-12P-163-0903449-00

PATIENT
  Sex: Female
  Weight: 53.118 kg

DRUGS (3)
  1. SYNTHROID [Suspect]
     Indication: PRODUCT USED FOR UNKNOWN INDICATION
  2. SYNTHROID [Suspect]
     Dates: start: 20110101
  3. SUTENT [Suspect]
     Indication: RENAL CANCER METASTATIC

REACTIONS (17)
  - OVARIAN CYST [None]
  - THYROID CANCER [None]
  - WEIGHT INCREASED [None]
  - PARAGANGLION NEOPLASM BENIGN [None]
  - MENTAL IMPAIRMENT [None]
  - BRAIN NEOPLASM BENIGN [None]
  - SWOLLEN TONGUE [None]
  - THYROID DISORDER [None]
  - NEOPLASM MALIGNANT [None]
  - RED BLOOD CELL COUNT DECREASED [None]
  - DEPRESSION [None]
  - OVARIAN CANCER [None]
  - FATIGUE [None]
  - DRUG INEFFECTIVE [None]
  - RENAL CANCER [None]
  - WHITE BLOOD CELL COUNT DECREASED [None]
  - BLOOD PRESSURE INCREASED [None]
